FAERS Safety Report 14348590 (Version 1)
Quarter: 2018Q1

REPORT INFORMATION
  Report Type: Spontaneous
  Country: FR (occurrence: FR)
  Receive Date: 20180103
  Receipt Date: 20180103
  Transmission Date: 20180509
  Serious: Yes (Hospitalization)
  Sender: FDA-Public Use
  Company Number: FR-MERCK KGAA-2038271

PATIENT
  Age: 58 Year
  Sex: Female
  Weight: 52 kg

DRUGS (3)
  1. NOVOTHYROX [Suspect]
     Active Substance: LEVOTHYROXINE SODIUM
     Indication: HYPOTHYROIDISM
     Route: 048
  2. PROGESTERONE. [Concomitant]
     Active Substance: PROGESTERONE
  3. LANSOPRAZOLE. [Concomitant]
     Active Substance: LANSOPRAZOLE

REACTIONS (8)
  - Palpitations [Recovering/Resolving]
  - Headache [Recovering/Resolving]
  - Product formulation issue [Recovering/Resolving]
  - Muscle spasms [Recovering/Resolving]
  - Hot flush [Recovering/Resolving]
  - Fatigue [Recovering/Resolving]
  - Insomnia [Recovering/Resolving]
  - Formication [Recovering/Resolving]

NARRATIVE: CASE EVENT DATE: 201709
